FAERS Safety Report 25811678 (Version 2)
Quarter: 2025Q3

REPORT INFORMATION
  Report Type: Spontaneous
  Country: US (occurrence: US)
  Receive Date: 20250917
  Receipt Date: 20250923
  Transmission Date: 20251020
  Serious: No
  Sender: ABBVIE
  Company Number: US-ABBVIE-6457793

PATIENT
  Sex: Female

DRUGS (1)
  1. LUMIGAN [Suspect]
     Active Substance: BIMATOPROST
     Indication: Product used for unknown indication
     Dosage: 0.01% 5 MILLIGRAM SUSPENSION/DROPS
     Route: 047

REACTIONS (2)
  - Visual impairment [Unknown]
  - Product container issue [Not Recovered/Not Resolved]
